FAERS Safety Report 8047781-6 (Version None)
Quarter: 2012Q1

REPORT INFORMATION
  Report Type: 
  Country: None (occurrence: None)
  Receive Date: 20120116
  Receipt Date: 20120112
  Transmission Date: 20120608
  Serious: Yes (Death, Other)
  Sender: FDA-Public Use
  Company Number: US-AMGEN-USASP2012002470

PATIENT
  Age: 81 Year
  Sex: Male

DRUGS (3)
  1. VELCADE [Suspect]
     Indication: MULTIPLE MYELOMA
     Dosage: 2 MG, QCYCLE
     Route: 058
     Dates: start: 20110914
  2. NEULASTA [Suspect]
     Indication: NEUTROPENIA
     Dosage: UNK
     Dates: start: 20110919
  3. ALKERAN [Suspect]
     Indication: MULTIPLE MYELOMA
     Dosage: UNK UNK, QCYCLE
     Route: 048
     Dates: start: 20110914

REACTIONS (3)
  - NEUTROPHIL COUNT DECREASED [None]
  - ACCIDENT [None]
  - NEUTROPENIA [None]
